FAERS Safety Report 13336968 (Version 1)
Quarter: 2017Q1

REPORT INFORMATION
  Report Type: Spontaneous
  Country: US (occurrence: US)
  Receive Date: 20170314
  Receipt Date: 20170314
  Transmission Date: 20170428
  Serious: No
  Sender: FDA-Public Use
  Company Number: US-009507513-1703USA002898

PATIENT
  Sex: Female
  Weight: 68.03 kg

DRUGS (1)
  1. NEXPLANON [Suspect]
     Active Substance: ETONOGESTREL
     Indication: PRODUCT USED FOR UNKNOWN INDICATION
     Dosage: 1 DF/3 YEARS (1 ROD/3 YEARS)
     Route: 059
     Dates: start: 20160606, end: 20170301

REACTIONS (3)
  - Menometrorrhagia [Unknown]
  - Mood altered [Unknown]
  - Device breakage [Unknown]
